FAERS Safety Report 17880187 (Version 1)
Quarter: 2020Q2

REPORT INFORMATION
  Report Type: Spontaneous
  Country: GB (occurrence: GB)
  Receive Date: 20200610
  Receipt Date: 20200610
  Transmission Date: 20200714
  Serious: Yes (Other)
  Sender: FDA-Public Use
  Company Number: GB-ACCORD-184966

PATIENT
  Age: 53 Year
  Sex: Male
  Weight: 104 kg

DRUGS (3)
  1. ATENOLOL/ATENOLOL HYDROCHLORIDE [Concomitant]
     Active Substance: ATENOLOL HYDROCHLORIDE
  2. AMLODIPINE ACCORD HEALTHCARE [Suspect]
     Active Substance: AMLODIPINE BESYLATE
     Indication: ESSENTIAL HYPERTENSION
     Route: 048
     Dates: start: 20200511, end: 20200516
  3. ALLOPURINOL. [Concomitant]
     Active Substance: ALLOPURINOL

REACTIONS (2)
  - Product substitution issue [Unknown]
  - Dizziness postural [Recovered/Resolved]

NARRATIVE: CASE EVENT DATE: 20200511
